FAERS Safety Report 18504848 (Version 1)
Quarter: 2020Q4

REPORT INFORMATION
  Report Type: Spontaneous
  Country: US (occurrence: US)
  Receive Date: 20201115
  Receipt Date: 20201115
  Transmission Date: 20210114
  Serious: Yes (Hospitalization)
  Sender: FDA-Public Use
  Company Number: US-ARBOR PHARMACEUTICALS, LLC-US-2020ARB000022

PATIENT
  Age: 56 Year

DRUGS (1)
  1. GLIADEL [Suspect]
     Active Substance: CARMUSTINE
     Indication: GLIOBLASTOMA
     Dosage: UNK
     Dates: start: 20191210

REACTIONS (1)
  - Cerebrospinal fluid drainage [Recovered/Resolved]

NARRATIVE: CASE EVENT DATE: 20191230
